FAERS Safety Report 16533532 (Version 20)
Quarter: 2023Q1

REPORT INFORMATION
  Report Type: Spontaneous
  Country: US (occurrence: US)
  Receive Date: 20190705
  Receipt Date: 20230207
  Transmission Date: 20230418
  Serious: Yes (Other)
  Sender: FDA-Public Use
  Company Number: US-PFIZER INC-2019285743

PATIENT
  Age: 70 Year
  Sex: Female
  Weight: 70.748 kg

DRUGS (34)
  1. PRISTIQ EXTENDED-RELEASE [Suspect]
     Active Substance: DESVENLAFAXINE SUCCINATE
     Indication: Anxiety
     Dosage: 50 MG
  2. PRISTIQ EXTENDED-RELEASE [Suspect]
     Active Substance: DESVENLAFAXINE SUCCINATE
     Indication: Depression
     Dosage: 100 MG, 1X/DAY (IN THE MORNING)
     Route: 048
  3. PRISTIQ EXTENDED-RELEASE [Suspect]
     Active Substance: DESVENLAFAXINE SUCCINATE
     Indication: Type 2 diabetes mellitus
     Dosage: 100 MG, 1X/DAY
     Route: 048
  4. PRISTIQ EXTENDED-RELEASE [Suspect]
     Active Substance: DESVENLAFAXINE SUCCINATE
     Dosage: 100 MG, 1X/DAY (RELEASE 24 HOUR 1 TABLET ORALLY BRAND NAME MEDICALLY NECESSARY ONCE A DAY)
     Route: 048
  5. PRISTIQ EXTENDED-RELEASE [Suspect]
     Active Substance: DESVENLAFAXINE SUCCINATE
     Dosage: UNK
     Dates: start: 201907, end: 202002
  6. PRISTIQ EXTENDED-RELEASE [Suspect]
     Active Substance: DESVENLAFAXINE SUCCINATE
     Dosage: UNK
     Dates: start: 202004, end: 202006
  7. PRISTIQ EXTENDED-RELEASE [Suspect]
     Active Substance: DESVENLAFAXINE SUCCINATE
     Dosage: UNK
     Dates: start: 202008
  8. FISH OIL [Concomitant]
     Active Substance: FISH OIL
     Dosage: 4000 MG, DAILY (1CAPSULE IN AM, 1 CAPSULE IN PM)
  9. ASPERCREME WITH LIDOCAINE [Concomitant]
     Active Substance: LIDOCAINE
     Dosage: UNK, AS NEEDED (EXETERNALLY Q12H PRN)
  10. VICTOZA [Concomitant]
     Active Substance: LIRAGLUTIDE
     Dosage: 0.3 ML, 1X/DAY (18MG/3ML)
     Route: 058
  11. BETAMETHASONE DIPROPIONATE [Concomitant]
     Active Substance: BETAMETHASONE DIPROPIONATE
     Dosage: 2 G, 2X/DAY (APPLY 2 GRAMS TO AFFECTED AREA 2 TIMES DAILY)
  12. AMOXICILLIN AND CLAVULANATE POTASSIUM [AMOXICILLIN TRIHYDRATE;CLAVULAN [Concomitant]
     Dosage: 1 DF, 2X/DAY (1 TABLET ORALLY EVERY 12 HRS)
     Route: 048
  13. PHENTERMINE HYDROCHLORIDE [Concomitant]
     Active Substance: PHENTERMINE HYDROCHLORIDE
     Dosage: 37.5 MG, 1X/DAY (1 TABLET ORALLY ONCE A DAY)
     Route: 048
  14. TOPROL XL [Concomitant]
     Active Substance: METOPROLOL SUCCINATE
     Dosage: 100 MG, DAILY (TAKE 1 TABLET (100MG) BY ORAL ROUTE EVERY DAY ORALLY +DIRECTED)
     Route: 048
  15. CYANOCOBALAMIN [Concomitant]
     Active Substance: CYANOCOBALAMIN
     Dosage: 1000 UG/ML, MONTHLY (1 VIAL UNDER THE SKIN ONCE PER MONTH AS DIRECTED)
     Route: 058
  16. METOPROLOL SUCCINATE [Concomitant]
     Active Substance: METOPROLOL SUCCINATE
     Dosage: 100 MG, 1X/DAY (1 CAPSULE ORALLY ONCE A DAY)
     Route: 048
  17. AMBIEN [Concomitant]
     Active Substance: ZOLPIDEM TARTRATE
     Dosage: 10 MG, AS NEEDED (1 TABLET AT BEDTIME AS NEEDED ORALLY ONCE A DAY)
     Route: 048
  18. DIAZEPAM [Concomitant]
     Active Substance: DIAZEPAM
     Dosage: 10 MG, AS NEEDED (TAKE 1 TABLET BY MOUTH TWICE DAILY/ 1 TABLET AS NEEDED)
     Route: 048
  19. LEVOTHYROXINE SODIUM [Concomitant]
     Active Substance: LEVOTHYROXINE SODIUM
     Dosage: 75 UG, DAILY (1 TAB. ORALLY DAILY )
     Route: 048
  20. CYCLOBENZAPRINE HYDROCHLORIDE [Concomitant]
     Active Substance: CYCLOBENZAPRINE HYDROCHLORIDE
     Dosage: 5 MG, AS NEEDED (1 TABLET AS NEEDED ORALLY THREE TIMES A DAY)
     Route: 048
  21. CYCLOBENZAPRINE HYDROCHLORIDE [Concomitant]
     Active Substance: CYCLOBENZAPRINE HYDROCHLORIDE
     Dosage: 10 MG, AS NEEDED (10 MG TABLET 1 TABLET AS NEEDED ORALLY THREE TIMES A DAY)
     Route: 048
  22. FUROSEMIDE [Concomitant]
     Active Substance: FUROSEMIDE
     Dosage: 20 MG, AS NEEDED (1 TABLET BY MOUTH ONCE A DAY AS NEEDED)
     Route: 048
  23. MECLIZINE HYDROCHLORIDE [Concomitant]
     Active Substance: MECLIZINE HYDROCHLORIDE
     Dosage: 12.5 MG, AS NEEDED (1 TABLETS AS NEEDED ORALLY BID)
     Route: 048
  24. FAMOTIDINE [Concomitant]
     Active Substance: FAMOTIDINE
     Dosage: 40 MG, 1X/DAY (1 TABLET BY MOUTH EVERY DAY AT BEDTIME)
     Route: 048
  25. PROMETHAZINE HYDROCHLORIDE [Concomitant]
     Active Substance: PROMETHAZINE HYDROCHLORIDE
     Dosage: 25 MG, AS NEEDED (TAKE 1 TABLET BY MOUTH EVERY 12 HOURS AS NEEDED)
     Route: 048
  26. ADIPEX-P [Concomitant]
     Active Substance: PHENTERMINE HYDROCHLORIDE
     Dosage: 37.5 MG, 1X/DAY (1 TABLET BMI}27 ONCE A DAY )
     Route: 048
  27. GABAPENTIN [Concomitant]
     Active Substance: GABAPENTIN
     Dosage: 400 MG, 3X/DAY (TAKE 1 CAPSULE BY MOUTH THREE TIMES DAILY)
     Route: 048
  28. OMEPRAZOLE [Concomitant]
     Active Substance: OMEPRAZOLE
     Dosage: 40 MG, DAILY (TAKE 1 CAPSULE BY MOUTH EVERY DAY 30 MINUTES BEFORE BREAKFAST)
     Route: 048
  29. METFORMIN HYDROCHLORIDE [Concomitant]
     Active Substance: METFORMIN HYDROCHLORIDE
     Dosage: 1000 MG, 2X/DAY (TAKE 1 TABLET (1OOO MG) BY MOUTH TWICE DAILY WITH THE MORNING AND EVENING MEAL)
     Route: 048
  30. ACETAMINOPHEN\HYDROCODONE [Concomitant]
     Active Substance: ACETAMINOPHEN\HYDROCODONE
     Indication: Pain
     Dosage: 1 DF, AS NEEDED (1 TABLET AS NEEDED ORALLY NON-ACUTE PAIN Q4H)
     Route: 048
  31. INSULIN PORK\INSULIN PURIFIED PORK [Concomitant]
     Active Substance: INSULIN PORK\INSULIN PURIFIED PORK
     Dosage: UNK (32G X6MM MISCELLANEOUS AS DIRECTED AS DIRECTED DAIL)
  32. METOPROLOL SUCCINATE [Concomitant]
     Active Substance: METOPROLOL SUCCINATE
     Dosage: 100 MG, DAILY (TABLET EXTENDED RELEASE 24 HOUR TAKE 1 TABLET BY MOUTH EVERY DAY)
     Route: 048
  33. BACLOFEN [Concomitant]
     Active Substance: BACLOFEN
     Dosage: UNK
  34. VOLTAREN [Concomitant]
     Active Substance: DICLOFENAC SODIUM

REACTIONS (18)
  - Cataract [Not Recovered/Not Resolved]
  - Hallucination [Not Recovered/Not Resolved]
  - Feeling abnormal [Not Recovered/Not Resolved]
  - Visual impairment [Not Recovered/Not Resolved]
  - Histrionic personality disorder [Not Recovered/Not Resolved]
  - Mood swings [Not Recovered/Not Resolved]
  - Dissociation [Not Recovered/Not Resolved]
  - Headache [Not Recovered/Not Resolved]
  - Drug effective for unapproved indication [Not Recovered/Not Resolved]
  - Mental disorder [Not Recovered/Not Resolved]
  - Nervousness [Not Recovered/Not Resolved]
  - Panic reaction [Unknown]
  - Anxiety [Unknown]
  - Insomnia [Unknown]
  - Back pain [Unknown]
  - Neck pain [Unknown]
  - Fatigue [Unknown]
  - Pain assessment [Unknown]
